FAERS Safety Report 4917394-0 (Version None)
Quarter: 2006Q1

REPORT INFORMATION
  Report Type: 
  Country: None (occurrence: None)
  Receive Date: 20060221
  Receipt Date: 20060209
  Transmission Date: 20060701
  Serious: Yes (Hospitalization)
  Sender: FDA-Public Use
  Company Number: FR-GLAXOSMITHKLINE-B0409904A

PATIENT
  Age: 7 Year
  Sex: Male

DRUGS (3)
  1. LAMICTAL [Suspect]
     Indication: EPILEPSY
     Route: 048
     Dates: end: 20060103
  2. TRILEPTAL [Suspect]
     Indication: EPILEPSY
     Dosage: 300MG TWICE PER DAY
     Route: 048
     Dates: start: 20051005
  3. VALPROATE SODIUM + VALPROIC ACID [Suspect]
     Indication: EPILEPSY
     Route: 048
     Dates: end: 20060103

REACTIONS (3)
  - ENCEPHALOPATHY [None]
  - HEPATIC FAILURE [None]
  - STATUS EPILEPTICUS [None]
